FAERS Safety Report 6367913-5 (Version None)
Quarter: 2009Q3

REPORT INFORMATION
  Report Type: 
  Country: None (occurrence: None)
  Receive Date: 20090922
  Receipt Date: 20090909
  Transmission Date: 20100115
  Serious: Yes (Hospitalization)
  Sender: FDA-Public Use
  Company Number: DE-RANBAXY-2009RR-28050

PATIENT
  Age: 83 Year
  Sex: Female
  Weight: 58 kg

DRUGS (7)
  1. FUROSEMIDE [Suspect]
     Indication: HYPERTENSION
     Dosage: UNK
     Route: 048
     Dates: start: 20081201, end: 20090811
  2. ACETYLSALICYLIC ACID [Concomitant]
     Indication: CORONARY ARTERY DISEASE
     Dosage: UNK
     Route: 048
     Dates: start: 19970101
  3. ALLOPURINOL [Concomitant]
     Indication: RENAL IMPAIRMENT
     Dosage: UNK
     Route: 048
     Dates: start: 20070101
  4. BISOPROLOL [Concomitant]
     Indication: CORONARY ARTERY DISEASE
     Dosage: UNK
     Route: 048
     Dates: start: 19970101
  5. FOSAVANCE [Concomitant]
     Indication: FEMORAL NECK FRACTURE
     Dosage: UNK
     Route: 048
     Dates: start: 19990101
  6. NEORECORMON [Concomitant]
     Indication: RENAL IMPAIRMENT
     Dosage: UNK
     Route: 058
     Dates: start: 20081201
  7. SIMVASTATIN [Concomitant]
     Indication: CORONARY ARTERY DISEASE
     Dosage: UNK
     Route: 048
     Dates: start: 19970101

REACTIONS (1)
  - RENAL FAILURE ACUTE [None]
